FAERS Safety Report 8115339-6 (Version None)
Quarter: 2012Q1

REPORT INFORMATION
  Report Type: 
  Country: None (occurrence: None)
  Receive Date: 20120206
  Receipt Date: 20120206
  Transmission Date: 20120608
  Serious: No
  Sender: FDA-Public Use
  Company Number: None

PATIENT
  Sex: Male

DRUGS (2)
  1. KETOROLAC TROMETHAMINE [Concomitant]
  2. CEFTRIAXONE [Suspect]

REACTIONS (2)
  - ERYTHEMA [None]
  - SWELLING [None]
